FAERS Safety Report 24077666 (Version 4)
Quarter: 2024Q4

REPORT INFORMATION
  Report Type: Spontaneous
  Country: DE (occurrence: DE)
  Receive Date: 20240711
  Receipt Date: 20241227
  Transmission Date: 20250114
  Serious: Yes (Hospitalization, Other)
  Sender: SANDOZ
  Company Number: DE-INDIVIOR UK LIMITED-INDV-145801-2024

PATIENT
  Age: 39 Year
  Sex: Female

DRUGS (6)
  1. BUPRENORPHINE [Suspect]
     Active Substance: BUPRENORPHINE
     Indication: Product used for unknown indication
     Dosage: UNK
     Route: 065
  2. LORAZEPAM [Suspect]
     Active Substance: LORAZEPAM
     Indication: Product used for unknown indication
     Dosage: S-LORAZEPAM-CNS-BENZODIAZEPINE
     Route: 065
  3. METHYLPHENIDATE HYDROCHLORIDE [Suspect]
     Active Substance: METHYLPHENIDATE HYDROCHLORIDE
     Indication: Product used for unknown indication
     Dosage: UNK
     Route: 065
  4. OLANZAPINE [Suspect]
     Active Substance: OLANZAPINE
     Indication: Product used for unknown indication
     Dosage: S-OLANZAPINE-CNS-NON-BENZO CNS DEPRESSANT
     Route: 065
  5. PREGABALIN [Suspect]
     Active Substance: PREGABALIN
     Indication: Product used for unknown indication
     Dosage: S-PREGABALIN-CNS-NON-BENZO CNS DEPRESSANT
     Route: 065
  6. QUETIAPINE FUMARATE [Suspect]
     Active Substance: QUETIAPINE FUMARATE
     Indication: Product used for unknown indication
     Dosage: S-QUETIAPINE-CNS-NON BENZO CNS DEPRESSANT
     Route: 065

REACTIONS (5)
  - Abnormal behaviour [Unknown]
  - Screaming [Unknown]
  - Aggression [Unknown]
  - Substance abuse [Unknown]
  - Intentional product misuse [Unknown]
